FAERS Safety Report 5316796-0 (Version None)
Quarter: 2007Q2

REPORT INFORMATION
  Report Type: 
  Country: None (occurrence: None)
  Receive Date: 20070504
  Receipt Date: 20070430
  Transmission Date: 20071010
  Serious: Yes (Other)
  Sender: FDA-Public Use
  Company Number: US-ALLERGAN-0704397US

PATIENT
  Age: 51 Year
  Sex: Female

DRUGS (1)
  1. BOTOX COSMETIC [Suspect]
     Indication: SKIN WRINKLING
     Dosage: 27.5 UNITS, SINGLE
     Route: 030
     Dates: start: 20070208, end: 20070208

REACTIONS (4)
  - ARTHRALGIA [None]
  - DIARRHOEA [None]
  - FACE OEDEMA [None]
  - LOCALISED OEDEMA [None]
